FAERS Safety Report 7764565-4 (Version None)
Quarter: 2011Q3

REPORT INFORMATION
  Report Type: 
  Country: None (occurrence: None)
  Receive Date: 20110921
  Receipt Date: 20110915
  Transmission Date: 20111222
  Serious: Yes (Other)
  Sender: FDA-Public Use
  Company Number: CO-PFIZER INC-2011184843

PATIENT
  Age: 72 Year
  Sex: Male

DRUGS (7)
  1. METOPROLOL [Concomitant]
  2. LOVASTATIN [Concomitant]
  3. CARBAMAZEPINE [Concomitant]
  4. ACETYLSALICYLIC ACID [Concomitant]
  5. METFORMIN [Concomitant]
  6. OMEPRAZOLE [Concomitant]
  7. NEURONTIN [Suspect]
     Indication: DIABETIC NEUROPATHY
     Dosage: 300 MG, 1X/DAY
     Route: 048
     Dates: start: 20110808, end: 20110101

REACTIONS (5)
  - TACHYCARDIA [None]
  - DIARRHOEA [None]
  - INSOMNIA [None]
  - ONYCHALGIA [None]
  - FEELING OF DESPAIR [None]
